FAERS Safety Report 9547393 (Version 1)
Quarter: 2013Q3

REPORT INFORMATION
  Report Type: Spontaneous
  Country: US (occurrence: None)
  Receive Date: 20130920
  Receipt Date: 20130920
  Transmission Date: 20140515
  Serious: Yes (Other)
  Sender: FDA-Public Use
  Company Number: ACO_38378_2013

PATIENT
  Age: 54 Year
  Sex: Male

DRUGS (2)
  1. AMPYRA [Suspect]
     Indication: MULTIPLE SCLEROSIS
     Route: 048
     Dates: start: 20120619, end: 201210
  2. GABAPENTIN (GABAPENTIN) [Concomitant]

REACTIONS (3)
  - Dysphagia [None]
  - Muscle tightness [None]
  - Neuralgia [None]
